FAERS Safety Report 5573248-0 (Version None)
Quarter: 2007Q4

REPORT INFORMATION
  Report Type: 
  Country: None (occurrence: None)
  Receive Date: 20071220
  Receipt Date: 20071212
  Transmission Date: 20080405
  Serious: Yes (Other)
  Sender: FDA-Public Use
  Company Number: 2007337527

PATIENT
  Sex: Male

DRUGS (1)
  1. COOL MINT LISTERINE (MENTHOL, METHYLSALICYLATE, EUCALPTOL, THYMOL) [Suspect]
     Dosage: ORAL
     Route: 048

REACTIONS (1)
  - INCORRECT ROUTE OF DRUG ADMINISTRATION [None]
